FAERS Safety Report 20333841 (Version 3)
Quarter: 2022Q1

REPORT INFORMATION
  Report Type: Spontaneous
  Country: US (occurrence: US)
  Receive Date: 20220113
  Receipt Date: 20220131
  Transmission Date: 20220423
  Serious: Yes (Death, Hospitalization)
  Sender: FDA-Public Use
  Company Number: US-TEVA-2022-US-1997454

PATIENT
  Age: 25 Year
  Sex: Male

DRUGS (10)
  1. VORICONAZOLE [Suspect]
     Active Substance: VORICONAZOLE
     Indication: Candida infection
     Dosage: SCHEDULED FOR 6-12MONTHS
     Route: 048
  2. VORICONAZOLE [Suspect]
     Active Substance: VORICONAZOLE
     Indication: Mediastinitis
  3. MYCOPHENOLIC ACID [Suspect]
     Active Substance: MYCOPHENOLIC ACID
     Indication: Immunosuppressant drug therapy
     Route: 065
  4. PREDNISONE [Suspect]
     Active Substance: PREDNISONE
     Indication: Immunosuppressant drug therapy
     Dosage: LOW DOSE
     Route: 065
  5. TACROLIMUS [Suspect]
     Active Substance: TACROLIMUS
     Indication: Immunosuppressant drug therapy
     Route: 065
  6. AMPHOTERICIN B [Suspect]
     Active Substance: AMPHOTERICIN B
     Indication: Gastrointestinal mucormycosis
     Route: 065
  7. CEFEPIME [Concomitant]
     Active Substance: CEFEPIME HYDROCHLORIDE
     Indication: Osteomyelitis
     Dosage: 6 WEEKS COURSE
     Route: 042
  8. VANCOMYCIN [Concomitant]
     Active Substance: VANCOMYCIN
     Indication: Osteomyelitis
     Dosage: 6 WEEKS COURSE
     Route: 042
  9. MICAFUNGIN [Concomitant]
     Active Substance: MICAFUNGIN
     Indication: Mediastinitis
     Route: 065
  10. MICAFUNGIN [Concomitant]
     Active Substance: MICAFUNGIN
     Indication: Candida infection

REACTIONS (9)
  - Gastrointestinal mucormycosis [Fatal]
  - Small intestinal obstruction [Fatal]
  - Pneumoperitoneum [Fatal]
  - Lactic acidosis [Fatal]
  - Hypothermia [Fatal]
  - Disseminated mucormycosis [Fatal]
  - Drug ineffective [Fatal]
  - Ischaemia [Unknown]
  - Ventricular fibrillation [Unknown]
